FAERS Safety Report 5324316-X (Version None)
Quarter: 2007Q2

REPORT INFORMATION
  Report Type: 
  Country: None (occurrence: None)
  Receive Date: 20070514
  Receipt Date: 20070503
  Transmission Date: 20071010
  Serious: Yes (Hospitalization)
  Sender: FDA-Public Use
  Company Number: FR-BOEHRINGER INGELHEIM PHARMACEUTICALS, INC.-2007-FF-00552FF

PATIENT
  Age: 45 Year
  Sex: Male
  Weight: 63 kg

DRUGS (3)
  1. VIRAMUNE [Suspect]
     Indication: HIV INFECTION
     Route: 048
     Dates: start: 20061207
  2. VIDEX [Concomitant]
     Indication: HIV INFECTION
     Route: 048
     Dates: start: 20010531
  3. EPIVIR [Concomitant]
     Indication: HIV INFECTION
     Route: 048
     Dates: start: 19961024

REACTIONS (1)
  - PAROTITIS [None]
